FAERS Safety Report 7589731-2 (Version None)
Quarter: 2011Q2

REPORT INFORMATION
  Report Type: 
  Country: None (occurrence: None)
  Receive Date: 20110603
  Receipt Date: 20110321
  Transmission Date: 20111010
  Serious: No
  Sender: FDA-Public Use
  Company Number: 2011SP012781

PATIENT
  Age: 18 Year
  Sex: Male

DRUGS (2)
  1. SAPHRIS [Suspect]
     Indication: PRODUCT USED FOR UNKNOWN INDICATION
     Dosage: 10 MG;SL ; 5 MG;SL
     Route: 060
     Dates: end: 20110201
  2. SAPHRIS [Suspect]
     Indication: PRODUCT USED FOR UNKNOWN INDICATION
     Dosage: 10 MG;SL ; 5 MG;SL
     Route: 060
     Dates: start: 20100601

REACTIONS (1)
  - BLOOD PROLACTIN INCREASED [None]
